FAERS Safety Report 13014711 (Version 1)
Quarter: 2016Q4

REPORT INFORMATION
  Report Type: Spontaneous
  Country: US (occurrence: US)
  Receive Date: 20161209
  Receipt Date: 20161209
  Transmission Date: 20170207
  Serious: Yes (Death)
  Sender: FDA-Public Use
  Company Number: US-ACTELION-A-NJ2016-146469

PATIENT
  Age: 59 Year
  Sex: Female

DRUGS (13)
  1. TRACLEER [Suspect]
     Active Substance: BOSENTAN
     Indication: PULMONARY ARTERIAL HYPERTENSION
     Dosage: 125 MG, BID
     Route: 048
  2. FENOFIBRATE. [Concomitant]
     Active Substance: FENOFIBRATE
  3. ATORVASTATIN [Concomitant]
     Active Substance: ATORVASTATIN
  4. FUROSEMIDE. [Concomitant]
     Active Substance: FUROSEMIDE
  5. METOLAZONE. [Concomitant]
     Active Substance: METOLAZONE
  6. WARFARIN [Concomitant]
     Active Substance: WARFARIN
  7. FISH OIL [Concomitant]
     Active Substance: FISH OIL
  8. WARFARIN [Concomitant]
     Active Substance: WARFARIN
  9. CARVEDILOL. [Concomitant]
     Active Substance: CARVEDILOL
  10. DIGOXIN. [Concomitant]
     Active Substance: DIGOXIN
  11. SPIRIVA [Concomitant]
     Active Substance: TIOTROPIUM BROMIDE MONOHYDRATE
  12. ADEMPAS [Concomitant]
     Active Substance: RIOCIGUAT
  13. DILTIAZEM CD [Concomitant]
     Active Substance: DILTIAZEM

REACTIONS (1)
  - Death [Fatal]

NARRATIVE: CASE EVENT DATE: 20161115
